FAERS Safety Report 11168015 (Version 1)
Quarter: 2015Q2

REPORT INFORMATION
  Report Type: Spontaneous
  Country: US (occurrence: None)
  Receive Date: 20150515
  Receipt Date: 20150515
  Transmission Date: 20150821
  Serious: Yes (Other)
  Sender: FDA-Public Use
  Company Number: 2014010474

PATIENT
  Age: 51 Year
  Sex: Female
  Weight: 129.7 kg

DRUGS (14)
  1. ASA (ASA) [Concomitant]
  2. VITAMIN B3 (NICOTINAMIDE) [Concomitant]
  3. METFORMIN [Concomitant]
     Active Substance: METFORMIN HYDROCHLORIDE
  4. LASIX [Concomitant]
     Active Substance: FUROSEMIDE
  5. LISINOPRIL (LISINOPRIL) [Concomitant]
     Active Substance: LISINOPRIL
  6. CIMZIA [Suspect]
     Active Substance: CERTOLIZUMAB PEGOL
     Indication: PSORIASIS
     Route: 058
     Dates: start: 20101204
  7. PROBIOTIC (BIFIDOBACTERIUM LACTIS) TABLET [Concomitant]
  8. ATENOLOL (ATENOLOL) [Concomitant]
     Active Substance: ATENOLOL
  9. CIMETIDINE. [Concomitant]
     Active Substance: CIMETIDINE
  10. FAMOTIDINE (FAMOTIDINE) [Concomitant]
     Active Substance: FAMOTIDINE
  11. CIMZIA [Suspect]
     Active Substance: CERTOLIZUMAB PEGOL
     Indication: CROHN^S DISEASE
     Route: 058
     Dates: start: 20101204
  12. CENTRUM CHEWABLE TABLET [Concomitant]
  13. FLOVENT [Concomitant]
     Active Substance: FLUTICASONE PROPIONATE
  14. PROAIR HRF (SALBUTAMOL SULFATE) [Concomitant]

REACTIONS (4)
  - Basal cell carcinoma [None]
  - Off label use [None]
  - Skin papilloma [None]
  - Scar [None]

NARRATIVE: CASE EVENT DATE: 20101204
